FAERS Safety Report 16456315 (Version 1)
Quarter: 2019Q2

REPORT INFORMATION
  Report Type: Spontaneous
  Country: JP (occurrence: JP)
  Receive Date: 20190620
  Receipt Date: 20190620
  Transmission Date: 20190711
  Serious: Yes (Other)
  Sender: FDA-Public Use
  Company Number: JP-PFIZER INC-2019250247

PATIENT
  Age: 55 Year
  Sex: Male

DRUGS (2)
  1. ROCEPHINE [Suspect]
     Active Substance: CEFTRIAXONE SODIUM
     Dosage: 4 G, DAILY
     Route: 041
     Dates: end: 201906
  2. ANAEMETRO 500MG [Suspect]
     Active Substance: METRONIDAZOLE
     Dosage: 11500 MG, DAILY
     Route: 041
     Dates: end: 201906

REACTIONS (2)
  - Overdose [Unknown]
  - Pancytopenia [Recovering/Resolving]

NARRATIVE: CASE EVENT DATE: 20190610
